FAERS Safety Report 10202683 (Version 2)
Quarter: 2014Q2

REPORT INFORMATION
  Report Type: Spontaneous
  Country: US (occurrence: US)
  Receive Date: 20140528
  Receipt Date: 20140610
  Transmission Date: 20141212
  Serious: Yes (Other)
  Sender: FDA-Public Use
  Company Number: CHPA2014US006440

PATIENT
  Age: 64 Year
  Sex: Female

DRUGS (4)
  1. MAALOX ADVANCED REGULAR STRENGTH [Suspect]
     Indication: GASTROOESOPHAGEAL REFLUX DISEASE
     Dosage: UNK, PRN
     Route: 048
  2. MAALOX ADVANCED REGULAR STRENGTH [Suspect]
     Indication: HIATUS HERNIA
  3. MAALOX ADVANCED REGULAR STRENGTH [Suspect]
     Indication: OFF LABEL USE
  4. MYLANTA                                 /AUS/ [Concomitant]
     Indication: HIATUS HERNIA

REACTIONS (3)
  - Hiatus hernia [Unknown]
  - Condition aggravated [Unknown]
  - Therapeutic response changed [Unknown]
